FAERS Safety Report 15157998 (Version 1)
Quarter: 2018Q3

REPORT INFORMATION
  Report Type: Spontaneous
  Country: US (occurrence: US)
  Receive Date: 20180718
  Receipt Date: 20180718
  Transmission Date: 20181010
  Serious: No
  Sender: FDA-Public Use
  Company Number: US-PFIZER INC-2018287313

PATIENT
  Age: 13 Year
  Sex: Female

DRUGS (1)
  1. GENOTROPIN MQ [Suspect]
     Active Substance: SOMATROPIN
     Dosage: 1 MG, DAILY
     Dates: start: 201110

REACTIONS (5)
  - Blood creatinine decreased [Unknown]
  - Blood immunoglobulin A increased [Unknown]
  - Blood phosphorus increased [Unknown]
  - Vitamin D decreased [Unknown]
  - Blood urea nitrogen/creatinine ratio increased [Unknown]
